FAERS Safety Report 15228645 (Version 1)
Quarter: 2018Q3

REPORT INFORMATION
  Report Type: Report from Study
  Country: US (occurrence: US)
  Receive Date: 20180801
  Receipt Date: 20180801
  Transmission Date: 20181010
  Serious: Yes (Other)
  Sender: FDA-Public Use
  Company Number: US-BAYER-2018-124790

PATIENT
  Age: 74 Year
  Sex: Male

DRUGS (1)
  1. STIVARGA [Suspect]
     Active Substance: REGORAFENIB
     Indication: COLORECTAL CANCER
     Dosage: 80 MG, QD
     Route: 048
     Dates: start: 20180627, end: 201807

REACTIONS (16)
  - Blood pressure increased [None]
  - Dehydration [None]
  - Neuropathy peripheral [None]
  - Chills [None]
  - Blood sodium decreased [None]
  - Tremor [None]
  - Headache [None]
  - Abdominal pain [None]
  - Blood potassium increased [None]
  - Joint swelling [None]
  - Asthenia [None]
  - Pallor [None]
  - Blood pressure increased [None]
  - Off label use [None]
  - Confusional state [None]
  - Pain in extremity [Recovering/Resolving]

NARRATIVE: CASE EVENT DATE: 20180627
